FAERS Safety Report 25066003 (Version 5)
Quarter: 2025Q3

REPORT INFORMATION
  Report Type: Report from Study
  Country: US (occurrence: US)
  Receive Date: 20250312
  Receipt Date: 20250731
  Transmission Date: 20251021
  Serious: Yes (Other)
  Sender: ABBVIE
  Company Number: US-ABBVIE-6165922

PATIENT
  Age: 84 Year
  Sex: Female
  Weight: 77.11 kg

DRUGS (2)
  1. RINVOQ [Suspect]
     Active Substance: UPADACITINIB
     Indication: Dermatitis atopic
     Dosage: FORM STRENGTH: 15 MILLIGRAM, LAST ADMIN-2024 SEP
     Route: 048
     Dates: start: 20240926
  2. RINVOQ [Suspect]
     Active Substance: UPADACITINIB
     Indication: Dermatitis atopic
     Route: 048
     Dates: start: 202409

REACTIONS (5)
  - Foot deformity [Recovered/Resolved]
  - Weight increased [Recovered/Resolved]
  - Peripheral swelling [Recovering/Resolving]
  - Hepatic enzyme increased [Recovered/Resolved]
  - Skin irritation [Recovered/Resolved]

NARRATIVE: CASE EVENT DATE: 20240101
